FAERS Safety Report 17058875 (Version 5)
Quarter: 2020Q1

REPORT INFORMATION
  Report Type: Spontaneous
  Country: US (occurrence: US)
  Receive Date: 20191121
  Receipt Date: 20200326
  Transmission Date: 20200409
  Serious: No
  Sender: FDA-Public Use
  Company Number: US-PFIZER INC-2019503803

PATIENT
  Age: 51 Year
  Sex: Female
  Weight: 109 kg

DRUGS (5)
  1. DOCETAXEL SANDOZ [Suspect]
     Active Substance: DOCETAXEL
     Indication: INVASIVE DUCTAL BREAST CARCINOMA
     Dosage: 75 MG, CYCLIC (06 CYCLES, EVERY THREE WEEKS)
     Dates: start: 20160916, end: 20170103
  2. TAXOTERE [Concomitant]
     Active Substance: DOCETAXEL
     Indication: INVASIVE DUCTAL BREAST CARCINOMA
     Dosage: 170 MG/10 MG/ ML, IN COMBINATION, FOR LEFT BREAST)
     Dates: start: 20160916, end: 20170103
  3. DOCETAXEL. [Suspect]
     Active Substance: DOCETAXEL
     Indication: INVASIVE DUCTAL BREAST CARCINOMA
     Dosage: 75 MG, CYCLIC (06 CYCLES, EVERY THREE WEEKS)
     Dates: start: 20160916, end: 20170103
  4. HYDROCODONE- ACETAMINOPHEN [Concomitant]
     Dosage: UNK
     Dates: start: 20160516, end: 20160902
  5. PARAPLATIN [Concomitant]
     Active Substance: CARBOPLATIN
     Indication: INVASIVE DUCTAL BREAST CARCINOMA
     Dosage: UNK (50 MG/5 ML IN COMBINATION, FOR LEFT BREAST)
     Dates: start: 20160916, end: 20170103

REACTIONS (5)
  - Madarosis [Not Recovered/Not Resolved]
  - Hair texture abnormal [Not Recovered/Not Resolved]
  - Hair colour changes [Not Recovered/Not Resolved]
  - Alopecia [Not Recovered/Not Resolved]
  - Hair disorder [Not Recovered/Not Resolved]

NARRATIVE: CASE EVENT DATE: 20160930
